FAERS Safety Report 8390025-6 (Version None)
Quarter: 2012Q2

REPORT INFORMATION
  Report Type: 
  Country: None (occurrence: None)
  Receive Date: 20120529
  Receipt Date: 20120517
  Transmission Date: 20120825
  Serious: Yes (Hospitalization)
  Sender: FDA-Public Use
  Company Number: US-SANOFI-AVENTIS-2012SA026594

PATIENT
  Sex: Male
  Weight: 77.11 kg

DRUGS (8)
  1. LANTUS [Suspect]
     Indication: TYPE 2 DIABETES MELLITUS
     Dosage: DOSE:30 UNIT(S)
     Route: 058
     Dates: start: 20070101
  2. EXELON [Concomitant]
     Indication: DEMENTIA
  3. GLIPIZIDE [Concomitant]
  4. SOLOSTAR [Suspect]
     Indication: TYPE 2 DIABETES MELLITUS
     Dates: start: 20110101
  5. METFORMIN HCL [Concomitant]
  6. ACETYLSALICYLIC ACID SRT [Concomitant]
  7. VITAMIN D [Concomitant]
     Dosage: 1 DAILY
  8. NAMENDA [Concomitant]
     Indication: DEMENTIA

REACTIONS (3)
  - BLOOD GLUCOSE INCREASED [None]
  - COLONIC OBSTRUCTION [None]
  - GASTROINTESTINAL MOTILITY DISORDER [None]
